FAERS Safety Report 14106383 (Version 1)
Quarter: 2017Q4

REPORT INFORMATION
  Report Type: Spontaneous
  Country: US (occurrence: US)
  Receive Date: 20171018
  Receipt Date: 20171018
  Transmission Date: 20180321
  Serious: No
  Sender: FDA-Public Use
  Company Number: US-AMGEN-USASP2017058587

PATIENT
  Sex: Female

DRUGS (1)
  1. PROLIA [Suspect]
     Active Substance: DENOSUMAB
     Indication: OSTEOPOROSIS
     Dosage: UNK
     Route: 065
     Dates: start: 201608

REACTIONS (6)
  - Therapy non-responder [Unknown]
  - Decreased activity [Unknown]
  - Mobility decreased [Unknown]
  - Headache [Unknown]
  - Night sweats [Unknown]
  - Pain in extremity [Unknown]
